FAERS Safety Report 15478606 (Version 1)
Quarter: 2018Q4

REPORT INFORMATION
  Report Type: Spontaneous
  Country: US (occurrence: US)
  Receive Date: 20181009
  Receipt Date: 20181009
  Transmission Date: 20190205
  Serious: Yes (Other)
  Sender: FDA-Public Use
  Company Number: US-ELI_LILLY_AND_COMPANY-US201809013162

PATIENT
  Age: 32 Year
  Sex: Female

DRUGS (4)
  1. LANTUS [Concomitant]
     Active Substance: INSULIN GLARGINE
     Dosage: 50 U, EACH EVENING (BEDTIME)
  2. LANTUS [Concomitant]
     Active Substance: INSULIN GLARGINE
     Indication: PRODUCT USED FOR UNKNOWN INDICATION
     Dosage: 45 U, EACH MORNING
  3. HUMALOG [Suspect]
     Active Substance: INSULIN LISPRO
     Indication: TYPE 1 DIABETES MELLITUS
     Dosage: 45 U, PRN (45 UNITS WITH EVERY MEAL AND SLIDING SCALE)
     Route: 065
     Dates: start: 199204
  4. NOVOLOG [Concomitant]
     Active Substance: INSULIN ASPART
     Indication: PRODUCT USED FOR UNKNOWN INDICATION
     Dosage: UNK
     Dates: start: 199204

REACTIONS (3)
  - Menorrhagia [Unknown]
  - Chronic kidney disease [Unknown]
  - Retinopathy [Unknown]

NARRATIVE: CASE EVENT DATE: 201209
